FAERS Safety Report 9013660 (Version 2)
Quarter: 2013Q1

REPORT INFORMATION
  Report Type: Spontaneous
  Country: US (occurrence: US)
  Receive Date: 20130115
  Receipt Date: 20130325
  Transmission Date: 20140127
  Serious: Yes (Other)
  Sender: FDA-Public Use
  Company Number: PHEH2013US001033

PATIENT
  Age: 62 Year
  Sex: Female
  Weight: 66.95 kg

DRUGS (23)
  1. RECLAST [Suspect]
     Dosage: UNK UKN, UNK
     Route: 042
     Dates: start: 201202
  2. PRILOSEC [Concomitant]
     Dosage: EXTENDED RELEASE, 1 CAPSULE BY MOUTH DAILY
     Route: 048
  3. CALCIUM [Concomitant]
  4. VITAMIN D [Concomitant]
  5. METHADONE [Concomitant]
  6. LUVOX [Concomitant]
     Dosage: 1 TABLET BY MOUTH AT BEDTIME
     Route: 048
  7. ZOFRAN [Concomitant]
     Dosage: 8 MG TABLET, TAKE 1 TABLET BY MOUTH TID PRN
     Route: 048
  8. ALBUTEROL [Concomitant]
     Dosage: 90 MCG/1 ACTUATION , INHALE 1 TO 2 PUFFS BY MOUTH  EVERY 4 TO 6 HR PRN
  9. DULERA [Concomitant]
     Dosage: INHALE 2 PUFFS BY MOUTH
  10. NEURONTIN [Concomitant]
     Dosage: 1 DF, TID
     Route: 048
  11. POTASSIUM CITRATE [Concomitant]
     Dosage: EXTENDED RELEASE, 2 TABLETS BY MOUTH TID WITH MEALS
     Route: 048
  12. IBUPROFEN [Concomitant]
     Indication: PAIN
     Dosage: 1 TABLET EVERY 6-8 HR PRN
     Route: 048
  13. INSULIN [Concomitant]
     Dosage: 1 CC SYRINGE USE AS DIRECTED
  14. VITAMIN D3 [Concomitant]
     Dosage: 2 DF, DAILY
  15. IMITREX//SUMATRIPTAN [Concomitant]
     Indication: MIGRAINE
     Dosage: 0.5 ML, PRN
     Route: 058
  16. BLOOD TESTS, AUXILIARY PRODUCTS [Concomitant]
     Dosage: GLUCOSE REAGENT BLOOD TEST STRIPS, ONCE A DAY, DX-HYPERGLYCEMIA 790.6
  17. DUONEB [Concomitant]
     Dosage: 0.5MG/3MG PER 3 ML NEBULIZER SOLUTION 4 TIMES A DAY PRN
  18. DICLOFENAC SODIUM [Concomitant]
     Dosage: UNK UKN, UNK
  19. VERAMYST [Concomitant]
     Dosage: 2 SPRAYS IN EACH NOSTRIL DAILY
  20. METHADONE HCL [Concomitant]
     Dosage: 1 TABLET EVERY 6-8 HR
  21. HYDROCORTISONE [Concomitant]
     Dosage: 1.5 TABLET DAILY
  22. BENTYL [Concomitant]
     Indication: ABDOMINAL PAIN
     Dosage: 1 TABLET BY MOUTH QID OR WHEN HAVE THE EVENTS
  23. BENTYL [Concomitant]
     Indication: ABDOMINAL PAIN

REACTIONS (5)
  - Chest pain [Recovered/Resolved]
  - Dyspnoea [Unknown]
  - Drug hypersensitivity [Unknown]
  - Chills [Recovered/Resolved]
  - Pyrexia [Recovered/Resolved]
